FAERS Safety Report 7688842-0 (Version None)
Quarter: 2011Q3

REPORT INFORMATION
  Report Type: 
  Country: None (occurrence: None)
  Receive Date: 20110817
  Receipt Date: 20110808
  Transmission Date: 20111222
  Serious: Yes (Hospitalization, Other)
  Sender: FDA-Public Use
  Company Number: PHFR2003IE04391

PATIENT
  Sex: Female

DRUGS (5)
  1. CLOZAPINE [Suspect]
     Indication: SCHIZOPHRENIA, PARANOID TYPE
     Route: 048
     Dates: start: 20001204, end: 20110617
  2. OLANZAPINE [Concomitant]
     Indication: PSYCHOTIC DISORDER
     Dosage: 5 MG, UNK
     Route: 048
  3. CLOZAPINE [Suspect]
     Route: 048
  4. LORAZEPAM [Concomitant]
     Indication: PSYCHOTIC DISORDER
     Dosage: 2 MG, UNK
     Route: 048
  5. CHLORPROMAZINE [Concomitant]
     Indication: PSYCHOTIC DISORDER
     Dosage: 100 MG, PRN
     Route: 048

REACTIONS (12)
  - MALAISE [None]
  - HAEMOGLOBIN DECREASED [None]
  - BREAST CANCER [None]
  - METASTASES TO LUNG [None]
  - WHITE BLOOD CELL COUNT INCREASED [None]
  - METASTASES TO LIVER [None]
  - HAEMATOCRIT DECREASED [None]
  - METASTASES TO BONE [None]
  - RED BLOOD CELL COUNT DECREASED [None]
  - BLOOD ALKALINE PHOSPHATASE INCREASED [None]
  - LYMPHOCYTE COUNT DECREASED [None]
  - NEUTROPHIL COUNT INCREASED [None]
